FAERS Safety Report 14952112 (Version 1)
Quarter: 2018Q2

REPORT INFORMATION
  Report Type: Report from Study
  Country: JP (occurrence: JP)
  Receive Date: 20180530
  Receipt Date: 20180530
  Transmission Date: 20180711
  Serious: Yes (Hospitalization)
  Sender: FDA-Public Use
  Company Number: JP-ROCHE-2047442

PATIENT
  Age: 40 Year
  Sex: Male
  Weight: 68 kg

DRUGS (10)
  1. VEMURAFENIB. [Suspect]
     Active Substance: VEMURAFENIB
     Indication: MALIGNANT MELANOMA
     Route: 048
     Dates: start: 20171010, end: 20171020
  2. DEPAKENE [Concomitant]
     Active Substance: VALPROIC ACID
     Route: 048
  3. AKINETON [Concomitant]
     Active Substance: BIPERIDEN HYDROCHLORIDE
     Route: 048
  4. LODOPIN (JAPAN) [Concomitant]
     Route: 048
  5. PURSENNID [Concomitant]
     Active Substance: SENNOSIDES A AND B
     Route: 048
  6. WYPAX [Concomitant]
     Active Substance: LORAZEPAM
     Route: 048
  7. TAFINLAR [Concomitant]
     Active Substance: DABRAFENIB MESYLATE
     Indication: MALIGNANT MELANOMA
     Route: 048
     Dates: start: 20171203, end: 20180507
  8. ZYPREXA [Concomitant]
     Active Substance: OLANZAPINE
     Route: 048
  9. ROHYPNOL [Concomitant]
     Active Substance: FLUNITRAZEPAM
     Route: 048
  10. MAGMITT [Concomitant]
     Active Substance: MAGNESIUM OXIDE
     Route: 048

REACTIONS (2)
  - Skin disorder [Recovered/Resolved]
  - Liver disorder [Recovered/Resolved]

NARRATIVE: CASE EVENT DATE: 20171020
